FAERS Safety Report 8442668 (Version 2)
Quarter: 2013Q3

REPORT INFORMATION
  Report Type: Spontaneous
  Country: BR (occurrence: None)
  Receive Date: 20120223
  Receipt Date: 20130705
  Transmission Date: 20140515
  Serious: Yes (Hospitalization, Other)
  Sender: FDA-Public Use
  Company Number: BR-025193

PATIENT
  Age: 76 Year
  Sex: Male
  Weight: 60.6 kg

DRUGS (1)
  1. CHLORAMBUCIL [Suspect]
     Indication: CHRONIC LYMPHOCYTIC LEUKAEMIA
     Dosage: ON DAY 1 AND DAY 15 EVERY 28 DAYS (31 MG, CYCLICAL)
     Route: 048
     Dates: start: 20111116, end: 20111213

REACTIONS (5)
  - Erysipelas [None]
  - Febrile neutropenia [None]
  - Diarrhoea [None]
  - Abdominal pain upper [None]
  - Bone marrow leukaemic cell infiltration [None]
